FAERS Safety Report 12331935 (Version 1)
Quarter: 2016Q2

REPORT INFORMATION
  Report Type: Spontaneous
  Country: US (occurrence: US)
  Receive Date: 20160504
  Receipt Date: 20160504
  Transmission Date: 20160815
  Serious: No
  Sender: FDA-Public Use
  Company Number: US-ROCHE-1650547

PATIENT
  Sex: Male
  Weight: 104.42 kg

DRUGS (3)
  1. ESBRIET [Suspect]
     Active Substance: PIRFENIDONE
     Dosage: 1 CAPSULE THRICE DAILY FOR A WEEK
     Route: 048
  2. ESBRIET [Suspect]
     Active Substance: PIRFENIDONE
     Dosage: 2 CAPSULES THRICE A DAY
     Route: 048
  3. ESBRIET [Suspect]
     Active Substance: PIRFENIDONE
     Indication: IDIOPATHIC PULMONARY FIBROSIS
     Dosage: 3 CAPS THRICE DAILY
     Route: 048
     Dates: start: 20150702

REACTIONS (2)
  - Abdominal discomfort [Unknown]
  - Rash [Not Recovered/Not Resolved]
